FAERS Safety Report 8508131-1 (Version None)
Quarter: 2012Q3

REPORT INFORMATION
  Report Type: 
  Country: None (occurrence: None)
  Receive Date: 20120713
  Receipt Date: 20120704
  Transmission Date: 20120928
  Serious: Yes (Hospitalization, Other)
  Sender: FDA-Public Use
  Company Number: JP-JNJFOC-20120704606

PATIENT
  Age: 32 Year
  Sex: Female

DRUGS (4)
  1. RISPERDAL [Suspect]
     Indication: PSYCHOTIC DISORDER
     Route: 048
  2. NITRAZEPAM [Suspect]
     Indication: PSYCHOTIC DISORDER
     Route: 048
  3. ZOLPIDEM TARTRATE [Suspect]
     Indication: PSYCHOTIC DISORDER
     Route: 048
  4. RISPERDAL [Suspect]
     Route: 048

REACTIONS (5)
  - SUICIDAL IDEATION [None]
  - AKATHISIA [None]
  - DYSPHAGIA [None]
  - SALIVARY HYPERSECRETION [None]
  - PSYCHOTIC DISORDER [None]
